FAERS Safety Report 9524482 (Version 3)
Quarter: 2013Q4

REPORT INFORMATION
  Report Type: Spontaneous
  Country: US (occurrence: US)
  Receive Date: 20130916
  Receipt Date: 20131024
  Transmission Date: 20140711
  Serious: No
  Sender: FDA-Public Use
  Company Number: US-PFIZER INC-2013265665

PATIENT
  Age: 75 Year
  Sex: Female
  Weight: 61.22 kg

DRUGS (4)
  1. LYRICA [Suspect]
     Indication: PAIN IN EXTREMITY
     Dosage: UNKNOWN DOSE, 1X/DAY
     Dates: start: 20130913
  2. LYRICA [Interacting]
     Indication: SPINAL COLUMN STENOSIS
  3. LEXAPRO [Interacting]
     Indication: ANXIETY
     Dosage: 10 MG, 1X/DAY
  4. DICYCLOMINE [Concomitant]
     Indication: IRRITABLE BOWEL SYNDROME
     Dosage: 10 MG, AS NEEDED

REACTIONS (7)
  - Off label use [Unknown]
  - Drug ineffective for unapproved indication [Unknown]
  - Drug interaction [Unknown]
  - Fatigue [Recovered/Resolved]
  - Somnolence [Recovered/Resolved]
  - Arthropathy [Recovered/Resolved]
  - Gait disturbance [Recovered/Resolved]
